FAERS Safety Report 21542161 (Version 1)
Quarter: 2022Q4

REPORT INFORMATION
  Report Type: Spontaneous
  Country: US (occurrence: US)
  Receive Date: 20221102
  Receipt Date: 20221102
  Transmission Date: 20230113
  Serious: Yes (Disabling)
  Sender: FDA-Public Use
  Company Number: US-PFIZER INC-2020291805

PATIENT
  Age: 37 Year
  Sex: Female

DRUGS (4)
  1. RAPAMUNE [Suspect]
     Active Substance: SIROLIMUS
     Indication: Cystic lung disease
     Dosage: 0.5 MG, DAILY; (1 TABLET ONCE DAILY, QUANTITY 90)
  2. RAPAMUNE [Suspect]
     Active Substance: SIROLIMUS
     Dosage: 1 MG, DAILY; (1 TABLET ONCE DAILY, QUANTITY 90)
  3. RAPAMUNE [Suspect]
     Active Substance: SIROLIMUS
     Dosage: 2 MG, DAILY; (1 TABLET ONCE DAILY, QUANTITY 90)
  4. RAPAMUNE [Suspect]
     Active Substance: SIROLIMUS
     Dosage: 1 MG, DAILY (1 TAB ONLY AT 8AM)

REACTIONS (2)
  - Bipolar disorder [Unknown]
  - Off label use [Unknown]
